FAERS Safety Report 8602105 (Version 2)
Quarter: 2014Q4

REPORT INFORMATION
  Report Type: Spontaneous
  Country: GB (occurrence: GB)
  Receive Date: 20120607
  Receipt Date: 20141219
  Transmission Date: 20150529
  Serious: Yes (Other)
  Sender: FDA-Public Use
  Company Number: GB-RANBAXY-2012R1-56842

PATIENT
  Age: 48 Year
  Sex: Male

DRUGS (7)
  1. ZIDOVUDINE. [Suspect]
     Active Substance: ZIDOVUDINE
     Indication: ANTIRETROVIRAL THERAPY
     Dosage: UNK
     Route: 065
     Dates: start: 200606
  2. ENGERIX-B [Suspect]
     Active Substance: HEPATITIS B VIRUS SUBTYPE ADW2 HBSAG SURFACE PROTEIN ANTIGEN
     Indication: PRODUCT USED FOR UNKNOWN INDICATION
     Dosage: UNK
     Route: 065
  3. LAMIVUDINE. [Suspect]
     Active Substance: LAMIVUDINE
     Indication: ANTIRETROVIRAL THERAPY
     Dosage: UNK
     Route: 065
     Dates: start: 200606
  4. EFAVIRENZ [Concomitant]
     Active Substance: EFAVIRENZ
     Indication: ANTIRETROVIRAL THERAPY
     Dosage: UNK
     Route: 065
     Dates: start: 200606
  5. ABACAVIR [Suspect]
     Active Substance: ABACAVIR
     Indication: ANTIRETROVIRAL THERAPY
     Dosage: UNK
     Route: 065
     Dates: start: 200711
  6. ENTECAVIR. [Suspect]
     Active Substance: ENTECAVIR
     Indication: ANTIRETROVIRAL THERAPY
     Dosage: UNK
     Route: 065
  7. HBVAXPRO [Suspect]
     Active Substance: HEPATITIS B VIRUS VACCINE
     Indication: PRODUCT USED FOR UNKNOWN INDICATION
     Dosage: UNK
     Route: 065

REACTIONS (5)
  - Drug resistance [Unknown]
  - Lipoatrophy [Unknown]
  - Vaccination failure [Unknown]
  - Gene mutation [Unknown]
  - Transaminases increased [Unknown]
